FAERS Safety Report 21684481 (Version 1)
Quarter: 2022Q4

REPORT INFORMATION
  Report Type: Spontaneous
  Country: ES (occurrence: ES)
  Receive Date: 20221205
  Receipt Date: 20221205
  Transmission Date: 20230112
  Serious: Yes (Hospitalization, Other)
  Sender: FDA-Public Use
  Company Number: None

PATIENT
  Age: 58 Year
  Sex: Female

DRUGS (5)
  1. LORAZEPAM [Suspect]
     Active Substance: LORAZEPAM
     Indication: Anxiety
     Dosage: 5 MG, DAILY
     Route: 048
     Dates: start: 20111128, end: 20220526
  2. TOUJEO [Concomitant]
     Active Substance: INSULIN GLARGINE
     Indication: Type 2 diabetes mellitus
     Dosage: 10.0 UI EVERY 24 H, 3 PENS 1,5 ML
     Route: 058
     Dates: start: 20220622
  3. CLONIDINE HYDROCHLORIDE [Concomitant]
     Active Substance: CLONIDINE HYDROCHLORIDE
     Indication: Cardiac valve disease
     Dosage: 6.25 MG BREAKFAST/DINNER
     Route: 048
     Dates: start: 20220603
  4. ALDACTONE [Concomitant]
     Active Substance: SPIRONOLACTONE
     Indication: Ascites
     Dosage: 25.0 MG BREAKFAST
     Route: 048
     Dates: start: 20221019
  5. CLOMETHIAZOLE [Concomitant]
     Active Substance: CLOMETHIAZOLE
     Indication: Affective disorder
     Dosage: 3.0 CAPS EVERY 24 H NIGHT
     Route: 048
     Dates: start: 20220603

REACTIONS (1)
  - Hepatic encephalopathy [Recovered/Resolved]

NARRATIVE: CASE EVENT DATE: 20220521
